FAERS Safety Report 6965313-8 (Version None)
Quarter: 2010Q3

REPORT INFORMATION
  Report Type: 
  Country: None (occurrence: None)
  Receive Date: 20100903
  Receipt Date: 20100826
  Transmission Date: 20110219
  Serious: Yes (Hospitalization, Other)
  Sender: FDA-Public Use
  Company Number: US-AMGEN-QUU396473

PATIENT
  Sex: Male
  Weight: 79.5 kg

DRUGS (15)
  1. NPLATE [Suspect]
     Indication: IDIOPATHIC THROMBOCYTOPENIC PURPURA
     Route: 058
     Dates: start: 20090528, end: 20100127
  2. DILAUDID [Concomitant]
  3. IMODIUM [Concomitant]
  4. XANAX [Concomitant]
  5. ZOLOFT [Concomitant]
  6. ZOCOR [Concomitant]
  7. TRUVADA [Concomitant]
  8. AMBIEN [Concomitant]
  9. PRILOSEC [Concomitant]
  10. NEURONTIN [Concomitant]
  11. KALETRA [Concomitant]
  12. LEVOTHYROXINE [Concomitant]
  13. POTASSIUM CHLORIDE [Concomitant]
  14. IMMU-G [Concomitant]
  15. RITUXAN [Concomitant]

REACTIONS (27)
  - ABDOMINAL PAIN [None]
  - ARTHRALGIA [None]
  - ASTHENIA [None]
  - BONE MARROW RETICULIN FIBROSIS [None]
  - BONE PAIN [None]
  - CHILLS [None]
  - DEPRESSION [None]
  - DIARRHOEA [None]
  - ECCHYMOSIS [None]
  - EPISTAXIS [None]
  - GINGIVAL BLEEDING [None]
  - HEPATITIS B CORE ANTIGEN POSITIVE [None]
  - HERPES ZOSTER [None]
  - HYPOKALAEMIA [None]
  - IDIOPATHIC THROMBOCYTOPENIC PURPURA [None]
  - MYALGIA [None]
  - NAUSEA [None]
  - NEUTROPENIA [None]
  - NORMOCHROMIC NORMOCYTIC ANAEMIA [None]
  - PALPITATIONS [None]
  - RASH PAPULAR [None]
  - STOMATITIS [None]
  - TEMPERATURE INTOLERANCE [None]
  - THERAPEUTIC RESPONSE DECREASED [None]
  - THROMBOCYTOPENIA [None]
  - TREATMENT NONCOMPLIANCE [None]
  - WEIGHT DECREASED [None]
